FAERS Safety Report 8028604-8 (Version None)
Quarter: 2012Q1

REPORT INFORMATION
  Report Type: 
  Country: None (occurrence: None)
  Receive Date: 20120106
  Receipt Date: 20110817
  Transmission Date: 20120608
  Serious: Yes (Death, Other)
  Sender: FDA-Public Use
  Company Number: CA-ABBOTT-11P-028-0844162-00

PATIENT
  Sex: Female
  Weight: 40.86 kg

DRUGS (1)
  1. HUMIRA [Suspect]
     Indication: RHEUMATOID ARTHRITIS
     Route: 058
     Dates: start: 20040716

REACTIONS (6)
  - RESPIRATORY FAILURE [None]
  - PULMONARY OEDEMA [None]
  - ATRIAL FIBRILLATION [None]
  - WEIGHT DECREASED [None]
  - PULMONARY FIBROSIS [None]
  - CARDIAC FAILURE CONGESTIVE [None]
